FAERS Safety Report 18985334 (Version 1)
Quarter: 2021Q1

REPORT INFORMATION
  Report Type: Spontaneous
  Country: CN (occurrence: CN)
  Receive Date: 20210309
  Receipt Date: 20210309
  Transmission Date: 20210420
  Serious: Yes (Hospitalization)
  Sender: FDA-Public Use
  Company Number: CN-BAXTER-2021BAX004423

PATIENT
  Age: 63 Year
  Sex: Male
  Weight: 58.6 kg

DRUGS (12)
  1. 0.9% SODIUM CHLORIDE INJECTION [Suspect]
     Active Substance: SODIUM CHLORIDE
     Dosage: DOSE RE?INTRODUCED, 0.9% SODIUM CHLORIDE INJECTION + CYCLOPHOSPHAMIDE
     Route: 041
  2. PIRARUBICIN HYDROCHLORIDE [Suspect]
     Active Substance: PIRARUBICIN HYDROCHLORIDE
     Dosage: DOSE RE?INTRODUCED, DOSAGE FORM: FREEZE?DRIED POWDER, PIRARUBICIN HYDROCHLORIDE + 5% GLUCOSE
     Route: 041
  3. ENDOXAN [Suspect]
     Active Substance: CYCLOPHOSPHAMIDE
     Indication: MANTLE CELL LYMPHOMA STAGE III
     Dosage: CYCLOPHOSPHAMIDE FOR INJECTION + 0.9% SODIUM CHLORIDE 500 ML
     Route: 041
     Dates: start: 20210207, end: 20210207
  4. VINCRISTINE SULFATE. [Suspect]
     Active Substance: VINCRISTINE SULFATE
     Indication: MANTLE CELL LYMPHOMA STAGE III
     Dosage: DOSAGE FROM: FREEZE?DRIED POWDER, VINCRISTINE SULFATE + 0.9% SODIUM CHLORIDE 50 ML
     Route: 041
     Dates: start: 20210207, end: 20210207
  5. 0.9% SODIUM CHLORIDE INJECTION [Suspect]
     Active Substance: SODIUM CHLORIDE
     Dosage: 0.9% SODIUM CHLORIDE INJECTION + VINCRISTINE SULFATE 2 MG
     Route: 041
     Dates: start: 20210207, end: 20210207
  6. 0.9% SODIUM CHLORIDE INJECTION [Suspect]
     Active Substance: SODIUM CHLORIDE
     Dosage: DOSE RE?INTRODUCED, 0.9% SODIUM CHLORIDE INJECTION + VINCRISTINE SULFATE
     Route: 041
  7. 5% GLUCOSE  INJECTION [Suspect]
     Active Substance: DEXTROSE
     Dosage: DOSE RE?INTRODUCED, 5% GLUCOSE+ PIRARUBICIN HYDROCHLORIDE
     Route: 041
  8. ENDOXAN [Suspect]
     Active Substance: CYCLOPHOSPHAMIDE
     Dosage: DOSE RE?INTRODUCED, CYCLOPHOSPHAMIDE + 0.9% SODIUM CHLORIDE
     Route: 041
  9. 0.9% SODIUM CHLORIDE INJECTION [Suspect]
     Active Substance: SODIUM CHLORIDE
     Indication: MEDICATION DILUTION
     Dosage: 0.9% SODIUM CHLORIDE INJECTION + CYCLOPHOSPHAMIDE 1000 MG
     Route: 041
     Dates: start: 20210207, end: 20210207
  10. VINCRISTINE SULFATE. [Suspect]
     Active Substance: VINCRISTINE SULFATE
     Dosage: DOSE RE?INTRODUCED, DOSAGE FROM: FREEZE?DRIED POWDER, VINCRISTINE SULFATE + 0.9% SODIUM CHLORIDE
     Route: 041
  11. PIRARUBICIN HYDROCHLORIDE [Suspect]
     Active Substance: PIRARUBICIN HYDROCHLORIDE
     Indication: MANTLE CELL LYMPHOMA STAGE III
     Dosage: DOSAGE FORM: FREEZE?DRIED POWDER, PIRARUBICIN HYDROCHLORIDE + 5% GLUCOSE 250 ML
     Route: 041
     Dates: start: 20210207, end: 20210207
  12. 5% GLUCOSE  INJECTION [Suspect]
     Active Substance: DEXTROSE
     Indication: MEDICATION DILUTION
     Dosage: 5% GLUCOSE + PIRARUBICIN HYDROCHLORIDE 50 MG
     Route: 041
     Dates: start: 20210207, end: 20210207

REACTIONS (1)
  - Granulocytopenia [Recovering/Resolving]

NARRATIVE: CASE EVENT DATE: 20210223
